FAERS Safety Report 13937375 (Version 10)
Quarter: 2021Q1

REPORT INFORMATION
  Report Type: Other
  Country: US (occurrence: US)
  Receive Date: 20170905
  Receipt Date: 20210301
  Transmission Date: 20210419
  Serious: Yes (Hospitalization)
  Sender: FDA-Public Use
  Company Number: US-ROCHE-1967078

PATIENT
  Age: 68 Year
  Sex: Female
  Weight: 57.66 kg

DRUGS (8)
  1. OCREVUS [Suspect]
     Active Substance: OCRELIZUMAB
     Dosage: SECOND FULL INFUSION
     Route: 042
  2. HCTZ [Concomitant]
     Active Substance: HYDROCHLOROTHIAZIDE
     Dosage: ONGOING:YES
     Dates: end: 1980
  3. BACLOFEN. [Concomitant]
     Active Substance: BACLOFEN
     Dosage: ONLY TWO TIMES
     Route: 048
     Dates: start: 201708, end: 201708
  4. BACLOFEN. [Concomitant]
     Active Substance: BACLOFEN
     Route: 048
  5. ADVIL [Concomitant]
     Active Substance: IBUPROFEN
     Route: 048
  6. OCREVUS [Suspect]
     Active Substance: OCRELIZUMAB
     Indication: RELAPSING MULTIPLE SCLEROSIS
     Dosage: DAY1, DAY14 AND THEN EVERY 6 MONTHS
     Route: 042
     Dates: start: 20170710
  7. OCREVUS [Suspect]
     Active Substance: OCRELIZUMAB
     Dosage: SIX MONTH INFUSION?MOST RECENT OCRELIZUMAB INFUSION : 28/JAN/2020
     Route: 042
     Dates: start: 20180727
  8. OCREVUS [Suspect]
     Active Substance: OCRELIZUMAB
     Indication: RELAPSING MULTIPLE SCLEROSIS
     Dosage: FIRST FULL INFUSION
     Route: 042
     Dates: start: 20180126

REACTIONS (15)
  - Tremor [Not Recovered/Not Resolved]
  - Coccydynia [Not Recovered/Not Resolved]
  - Arthropathy [Recovered/Resolved]
  - Dysgraphia [Unknown]
  - Urinary tract infection [Not Recovered/Not Resolved]
  - Tremor [Unknown]
  - Muscle twitching [Unknown]
  - Paraesthesia [Not Recovered/Not Resolved]
  - Weight increased [Not Recovered/Not Resolved]
  - Peripheral coldness [Unknown]
  - Arthropathy [Unknown]
  - Pain in extremity [Not Recovered/Not Resolved]
  - Nasopharyngitis [Not Recovered/Not Resolved]
  - Muscle spasms [Not Recovered/Not Resolved]
  - Flushing [Recovered/Resolved]

NARRATIVE: CASE EVENT DATE: 20170710
